FAERS Safety Report 21548571 (Version 1)
Quarter: 2022Q4

REPORT INFORMATION
  Report Type: Spontaneous
  Country: PT (occurrence: PT)
  Receive Date: 20221103
  Receipt Date: 20221103
  Transmission Date: 20230112
  Serious: Yes (Other)
  Sender: FDA-Public Use
  Company Number: PT-MYLANLABS-2022M1118642

PATIENT
  Age: 80 Year
  Sex: Male

DRUGS (4)
  1. SUNITINIB [Suspect]
     Active Substance: SUNITINIB
     Indication: Renal neoplasm
     Dosage: UNK
     Route: 065
     Dates: start: 20210301
  2. SUNITINIB [Suspect]
     Active Substance: SUNITINIB
     Indication: Lymphoma
  3. DENOSUMAB [Suspect]
     Active Substance: DENOSUMAB
     Indication: Lymphoma
     Dosage: UNK
     Route: 065
     Dates: start: 20210301
  4. DENOSUMAB [Suspect]
     Active Substance: DENOSUMAB
     Indication: Renal neoplasm

REACTIONS (9)
  - Leukopenia [Unknown]
  - Thrombocytopenia [Unknown]
  - Pancytopenia [Unknown]
  - Renal impairment [Unknown]
  - Anaemia macrocytic [Unknown]
  - Blood creatine phosphokinase increased [Unknown]
  - Diarrhoea [Unknown]
  - Aplasia [Unknown]
  - Iatrogenic injury [Unknown]
